FAERS Safety Report 10081648 (Version 1)
Quarter: 2014Q2

REPORT INFORMATION
  Report Type: Spontaneous
  Country: GB (occurrence: None)
  Receive Date: 20140414
  Receipt Date: 20140414
  Transmission Date: 20141212
  Serious: Yes (Hospitalization)
  Sender: FDA-Public Use
  Company Number: 2281175

PATIENT
  Age: 74 Year
  Sex: Male

DRUGS (9)
  1. METHOTREXATE [Suspect]
     Indication: PRODUCT USED FOR UNKNOWN INDICATION
     Route: 058
  2. PIPERACILLIN AND TAZOBACTAM [Suspect]
     Route: 055
     Dates: start: 20140311, end: 20140314
  3. ENOXAPARIN SODIUM [Concomitant]
  4. MIRTAZAPINE [Concomitant]
  5. LANSOPRAZOLE [Concomitant]
  6. PREDNISOLONE [Concomitant]
  7. FOLIC ACID [Concomitant]
  8. ALENDRONIC ACID [Concomitant]
  9. HYDROXYCHLOROQUINE SULFATE [Concomitant]

REACTIONS (2)
  - Burning mouth syndrome [None]
  - Drug interaction [None]
